FAERS Safety Report 21880328 (Version 1)
Quarter: 2023Q1

REPORT INFORMATION
  Report Type: Spontaneous
  Country: US (occurrence: None)
  Receive Date: 20230117
  Receipt Date: 20230117
  Transmission Date: 20230418
  Serious: No
  Sender: FDA-Public Use
  Company Number: None

PATIENT
  Sex: Female
  Weight: 87.54 kg

DRUGS (21)
  1. BRAFTOVI [Suspect]
     Active Substance: ENCORAFENIB
     Indication: Colon cancer
     Dosage: 300MG DAILY ORAL?
     Route: 048
     Dates: start: 20220810
  2. ACETAMINOPHEN [Concomitant]
     Active Substance: ACETAMINOPHEN
  3. ASPIRIN [Concomitant]
     Active Substance: ASPIRIN
  4. ATORVASTATIN [Concomitant]
     Active Substance: ATORVASTATIN
  5. BENAZEPRIL [Concomitant]
     Active Substance: BENAZEPRIL HYDROCHLORIDE
  6. CLOPIDOGREL [Concomitant]
     Active Substance: CLOPIDOGREL BISULFATE
  7. ESCITALOPRAM [Concomitant]
     Active Substance: ESCITALOPRAM OXALATE
  8. FERROUSUL [Concomitant]
  9. GABAPENTIN [Concomitant]
     Active Substance: GABAPENTIN
  10. Hydrochlororhiazide [Concomitant]
  11. LORAZEPAM [Concomitant]
     Active Substance: LORAZEPAM
  12. LEVOTHYROXINE [Concomitant]
     Active Substance: LEVOTHYROXINE
  13. METOPROLOL [Concomitant]
     Active Substance: METOPROLOL
  14. NITROGLYCERIN [Concomitant]
     Active Substance: NITROGLYCERIN
  15. NOVOLOG [Concomitant]
     Active Substance: INSULIN ASPART
  16. ONDANSETRON [Concomitant]
     Active Substance: ONDANSETRON
  17. OXYCODONE [Concomitant]
     Active Substance: OXYCODONE
  18. PANTOPRAZOLE [Concomitant]
     Active Substance: PANTOPRAZOLE
  19. Prometiazine [Concomitant]
  20. TRESIBA [Concomitant]
     Active Substance: INSULIN DEGLUDEC
  21. TRULANCE [Concomitant]
     Active Substance: PLECANATIDE

REACTIONS (1)
  - Drug ineffective [None]
